FAERS Safety Report 14795526 (Version 2)
Quarter: 2018Q2

REPORT INFORMATION
  Report Type: Spontaneous
  Country: BR (occurrence: BR)
  Receive Date: 20180423
  Receipt Date: 20180504
  Transmission Date: 20180711
  Serious: Yes (Other)
  Sender: FDA-Public Use
  Company Number: PHHY2018BR057719

PATIENT
  Age: 74 Year
  Sex: Female
  Weight: 85 kg

DRUGS (13)
  1. LOSARTAN. [Concomitant]
     Active Substance: LOSARTAN
     Indication: HYPERTENSION
     Dosage: 2 DF, QD
     Route: 048
  2. AMLODIPINE [Suspect]
     Active Substance: AMLODIPINE BESYLATE
     Indication: PRODUCT USED FOR UNKNOWN INDICATION
     Dosage: UNK
     Route: 065
  3. APRESOLINE HYDROCHLORIDE [Concomitant]
     Active Substance: HYDRALAZINE HYDROCHLORIDE
     Indication: HYPERTENSION
     Dosage: 2 DF, QD
     Route: 048
  4. OLCADIL [Suspect]
     Active Substance: CLOXAZOLAM
     Indication: HYPERTENSION
     Dosage: 0.5 DF, QD
     Route: 048
     Dates: end: 20180415
  5. OLCADIL [Suspect]
     Active Substance: CLOXAZOLAM
     Indication: INSOMNIA
  6. OMEGA 3 [Concomitant]
     Active Substance: OMEGA-3 FATTY ACIDS
     Indication: SUPPLEMENTATION THERAPY
     Dosage: 2 DF, QD
     Route: 048
  7. OLCADIL [Suspect]
     Active Substance: CLOXAZOLAM
     Indication: TENSION
     Dosage: 1 MG, QD
     Route: 048
     Dates: end: 201802
  8. OLCADIL [Suspect]
     Active Substance: CLOXAZOLAM
     Indication: ANXIETY
  9. OLCADIL [Suspect]
     Active Substance: CLOXAZOLAM
     Indication: STRESS AT WORK
  10. ATENSINE [Concomitant]
     Active Substance: DIAZEPAM
     Indication: HYPERTENSION
     Dosage: 2 DF, QD
     Route: 048
  11. FUROSEMIDE. [Concomitant]
     Active Substance: FUROSEMIDE
     Indication: HYPERTENSION
     Dosage: 2 DF, QD
     Route: 048
  12. CLOXAZOLAM [Suspect]
     Active Substance: CLOXAZOLAM
     Indication: PRODUCT USED FOR UNKNOWN INDICATION
     Dosage: UNK
     Route: 065
  13. ALPRAZOLAM. [Suspect]
     Active Substance: ALPRAZOLAM
     Indication: TENSION
     Route: 065

REACTIONS (12)
  - Palpitations [Recovered/Resolved]
  - Wrong technique in product usage process [Unknown]
  - Oedema [Recovered/Resolved]
  - Memory impairment [Recovered/Resolved]
  - Insomnia [Recovered/Resolved]
  - Type 2 diabetes mellitus [Recovered/Resolved]
  - Malaise [Recovered/Resolved]
  - Vasodilatation [Recovered/Resolved]
  - Fear [Recovered/Resolved]
  - Somnolence [Unknown]
  - Hypertension [Recovered/Resolved]
  - Anxiety [Recovered/Resolved]

NARRATIVE: CASE EVENT DATE: 201802
